FAERS Safety Report 7943237-7 (Version None)
Quarter: 2011Q4

REPORT INFORMATION
  Report Type: 
  Country: None (occurrence: None)
  Receive Date: 20111128
  Receipt Date: 20111122
  Transmission Date: 20120403
  Serious: Yes (Other)
  Sender: FDA-Public Use
  Company Number: US-VERTEX PHARMACEUTICALS INC.-AE-2011-003903

PATIENT
  Sex: Male
  Weight: 56.75 kg

DRUGS (3)
  1. INCIVEK [Suspect]
     Indication: HEPATITIS C
     Route: 048
     Dates: start: 20110925, end: 20111118
  2. PEGASYS [Concomitant]
     Indication: HEPATITIS C
     Route: 058
     Dates: start: 20110925, end: 20111118
  3. COPEGUS [Concomitant]
     Indication: HEPATITIS C
     Route: 048
     Dates: start: 20110925, end: 20111118

REACTIONS (12)
  - DYSSTASIA [None]
  - SELF-INJURIOUS IDEATION [None]
  - DEPRESSION [None]
  - CONFUSIONAL STATE [None]
  - HYPOAESTHESIA [None]
  - ABDOMINAL DISTENSION [None]
  - RASH [None]
  - EPISTAXIS [None]
  - NEGATIVE THOUGHTS [None]
  - CONSTIPATION [None]
  - NAUSEA [None]
  - VOMITING [None]
